FAERS Safety Report 9526805 (Version 1)
Quarter: 2013Q3

REPORT INFORMATION
  Report Type: Spontaneous
  Country: IL (occurrence: IL)
  Receive Date: 20130916
  Receipt Date: 20130916
  Transmission Date: 20140515
  Serious: Yes (Hospitalization, Other)
  Sender: FDA-Public Use
  Company Number: IL-GLAXOSMITHKLINE-B0922328A

PATIENT
  Age: 55 Year
  Sex: Male

DRUGS (8)
  1. ARIXTRA [Suspect]
     Indication: PRODUCT USED FOR UNKNOWN INDICATION
     Dosage: 2.5MG PER DAY
     Route: 058
  2. TASIGNA [Concomitant]
  3. ASPIRIN [Concomitant]
  4. PLAVIX [Concomitant]
  5. UNKNOWN DRUG [Concomitant]
  6. LIPITOR [Concomitant]
  7. TRITACE [Concomitant]
  8. IKAPRESS [Concomitant]
     Dosage: 240MG PER DAY

REACTIONS (1)
  - Myocardial infarction [Unknown]
